FAERS Safety Report 12944827 (Version 1)
Quarter: 2016Q4

REPORT INFORMATION
  Report Type: Spontaneous
  Country: US (occurrence: US)
  Receive Date: 20161116
  Receipt Date: 20161116
  Transmission Date: 20170207
  Serious: No
  Sender: FDA-Public Use
  Company Number: US-JNJFOC-20161018160

PATIENT
  Age: 64 Year
  Sex: Female
  Weight: 68.04 kg

DRUGS (3)
  1. WOMENS ROGAINE [Suspect]
     Active Substance: MINOXIDIL
     Indication: ALOPECIA
     Dosage: 5 SPRAYS
     Route: 061
     Dates: start: 2016
  2. PROZAC [Concomitant]
     Active Substance: FLUOXETINE HYDROCHLORIDE
     Indication: DEPRESSION
     Route: 065
  3. WOMENS ROGAINE [Suspect]
     Active Substance: MINOXIDIL
     Route: 061

REACTIONS (4)
  - Seborrhoea [Not Recovered/Not Resolved]
  - Incorrect dose administered [Not Recovered/Not Resolved]
  - Alopecia [Not Recovered/Not Resolved]
  - Trichorrhexis [Not Recovered/Not Resolved]
